FAERS Safety Report 22237969 (Version 2)
Quarter: 2023Q2

REPORT INFORMATION
  Report Type: Spontaneous
  Country: US (occurrence: US)
  Receive Date: 20230421
  Receipt Date: 20230510
  Transmission Date: 20230722
  Serious: Yes (Death, Life-Threatening, Hospitalization, Other)
  Sender: FDA-Public Use
  Company Number: US-MLMSERVICE-20230405-4208433-1

PATIENT
  Age: 50 Year
  Sex: Male
  Weight: 124.4 kg

DRUGS (11)
  1. PHENYLEPHRINE HYDROCHLORIDE [Suspect]
     Active Substance: PHENYLEPHRINE HYDROCHLORIDE
     Indication: Vasopressive therapy
  2. EPINEPHRINE [Suspect]
     Active Substance: EPINEPHRINE
     Indication: Pulseless electrical activity
     Dosage: ONE ROUND
  3. NOREPINEPHRINE [Suspect]
     Active Substance: NOREPINEPHRINE
     Indication: Vasopressive therapy
     Dosage: INCREASED BY 8/29
  4. PREDNISONE [Concomitant]
     Active Substance: PREDNISONE
     Indication: Gouty arthritis
     Dosage: TAPER
  5. VANCOMYCIN [Concomitant]
     Active Substance: VANCOMYCIN
  6. DOXYCYCLINE [Concomitant]
     Active Substance: DOXYCYCLINE
  7. MEROPENEM [Concomitant]
     Active Substance: MEROPENEM
  8. DEXTROSE [Concomitant]
     Active Substance: DEXTROSE\DEXTROSE MONOHYDRATE
     Indication: Vasopressive therapy
  9. NOREPINEPHRINE [Suspect]
     Active Substance: NOREPINEPHRINE
     Indication: Vasopressive therapy
     Dosage: STARTED AGAIN 8/27
  10. EPINEPHRINE [Suspect]
     Active Substance: EPINEPHRINE
     Indication: Cardiac arrest
  11. NOREPINEPHRINE [Suspect]
     Active Substance: NOREPINEPHRINE
     Indication: Vasopressive therapy
     Dosage: 8 MG/250 ML IN 5% DEXTROSE

REACTIONS (1)
  - Ischaemia [Fatal]
